FAERS Safety Report 6786433-7 (Version None)
Quarter: 2010Q2

REPORT INFORMATION
  Report Type: 
  Country: None (occurrence: None)
  Receive Date: 20100623
  Receipt Date: 20100616
  Transmission Date: 20101027
  Serious: Yes (Hospitalization)
  Sender: FDA-Public Use
  Company Number: A0866416A

PATIENT
  Age: 73 Year
  Sex: Female

DRUGS (2)
  1. AVANDIA [Suspect]
     Dates: start: 19910101, end: 20060730
  2. AVANDAMET [Suspect]
     Dates: start: 20051231, end: 20060201

REACTIONS (3)
  - COUGH [None]
  - DYSPHONIA [None]
  - MYOCARDIAL INFARCTION [None]
